FAERS Safety Report 9424802 (Version 2)
Quarter: 2013Q3

REPORT INFORMATION
  Report Type: Spontaneous
  Country: NO (occurrence: None)
  Receive Date: 20130724
  Receipt Date: 20130807
  Transmission Date: 20140515
  Serious: Yes (Disabling)
  Sender: FDA-Public Use
  Company Number: SYM-2013-06688

PATIENT
  Age: 74 Year
  Sex: Female

DRUGS (18)
  1. FLAGYL [Suspect]
     Indication: PNEUMONIA
     Dosage: 400 MG, 3 IN 1 D ORAL
     Route: 048
     Dates: start: 20080725, end: 20080731
  2. CIPROXIN (CIPROFLOXACIN HYDROCHLORIDE) (FILM-COATED TABLET) (CIPROFLOXACIN HYDROCHLORIDE) [Suspect]
     Indication: PNEUMONIA
     Route: 048
     Dates: start: 20130725, end: 20130731
  3. SAROTEX (AMITRIPTY-LINE) [Concomitant]
  4. METFORMIN (METFORMIN) (METFORMIN) [Concomitant]
  5. ATACAND (CANDESARTAN CILEXETIL) (CANDESARTAN CILEXETIL) [Concomitant]
  6. VERAPAMIL (VERAPAMIL HYDROCHLORIDE) (VERAPAMIL HYDROCHLORIDE) [Concomitant]
  7. PENICILLIN NOS (PENICILLIN NOS) (PENICILLIN NOS) [Concomitant]
  8. MAREVAN (WARFARIN SODIUM) (WARFARIN SODIUM) [Concomitant]
  9. LANZO (LANSOPRAZOLE) (LANSOPRAZOLE) [Concomitant]
  10. CEFUROXIME (CEFUROXIME) (CEFUROXIME) [Concomitant]
  11. DIGITOXIN (DIGITOXIN) (DIGITOXIN) [Concomitant]
  12. REMERON (MIRTAZAPINE) (MIRTAZAPINE) [Concomitant]
  13. CANDESARTAN CILEXETIL/HYDROCHLOROTHIAZIDE (BLOPRESS PLUS) (HYDROCHLOROTHIAZIDE, CANDESARTAN CILEXETIL) [Concomitant]
  14. ESOMEPRAZOLE MAGNESIUM (ESOMEPRAZOLE MAGNESIUM) (ESOMEPRAZOLE MAGNESIUM) [Concomitant]
  15. ALBYL-E (ALBYL-ENTEROSOLUBILE) (ACETYLSALICYLIC ACID, MAGNESIUM OXIDE) [Concomitant]
  16. ISOPTIN (VERAPAMIL HYDROCHLORIDE) (VERAPAMIL HYDROCHLORIDE) [Concomitant]
  17. CIPRALEX (ESCITALOPRAM) (ESCITALOPRAM) [Concomitant]
  18. NEBCINA (TOBRAMYCIN SULFATE) (TOBRAMYCIN SULFATE) [Concomitant]

REACTIONS (12)
  - Neuropathy peripheral [None]
  - Carpal tunnel syndrome [None]
  - Balance disorder [None]
  - Quality of life decreased [None]
  - Social problem [None]
  - Blood glucose increased [None]
  - Activities of daily living impaired [None]
  - Syncope [None]
  - Depression [None]
  - Sensory loss [None]
  - Myocardial infarction [None]
  - Spinal column stenosis [None]
